FAERS Safety Report 21582544 (Version 2)
Quarter: 2022Q4

REPORT INFORMATION
  Report Type: Report from Study
  Country: EG (occurrence: EG)
  Receive Date: 20221111
  Receipt Date: 20221114
  Transmission Date: 20230113
  Serious: Yes (Other)
  Sender: FDA-Public Use
  Company Number: EG-002147023-NVSC2022EG252925

PATIENT
  Sex: Female

DRUGS (6)
  1. GILENYA [Suspect]
     Active Substance: FINGOLIMOD HYDROCHLORIDE
     Indication: Multiple sclerosis
     Dosage: 1 DOSAGE FORM, QD
     Route: 048
     Dates: start: 20220810
  2. CHONDROITIN SULFATE (BOVINE)\DIMETHYL SULFONE\GLUCOSAMINE SULFATE [Concomitant]
     Active Substance: CHONDROITIN SULFATE (BOVINE)\DIMETHYL SULFONE\GLUCOSAMINE SULFATE
     Indication: Bone disorder
     Dosage: 1 DOSAGE FORM, QD (6 MONTHS TO ONE YEAR AGO)
     Route: 048
  3. BIOTIN [Concomitant]
     Active Substance: BIOTIN
     Indication: Immune system disorder
     Dosage: 1 DOSAGE FORM, QD (IN INTERMITTENT MANNER) (STARTED 2014 OR 2015)
     Route: 048
  4. BENFOTIAMINE\CYANOCOBALAMIN\PYRIDOXINE HYDROCHLORIDE [Concomitant]
     Active Substance: BENFOTIAMINE\CYANOCOBALAMIN\PYRIDOXINE HYDROCHLORIDE
     Indication: Immune system disorder
     Dosage: 1 DOSAGE FORM, QD (IN INTERMITTENT MANNER)
     Route: 048
     Dates: start: 2016
  5. NEUROBINE [Concomitant]
     Indication: Immune system disorder
     Dosage: 1 DOSAGE FORM, QD (IN INTERMITTENT MANNER)
     Route: 048
     Dates: start: 2016
  6. OSTEOCARE [Concomitant]
     Active Substance: CALCIUM\CHOLECALCIFEROL\MAGNESIUM\ZINC
     Indication: Immune system disorder
     Dosage: 1 DOSAGE FORM, QD (IN INTERMITTENT MANNER)
     Route: 048
     Dates: start: 2016

REACTIONS (8)
  - Skin discolouration [Not Recovered/Not Resolved]
  - Apraxia [Not Recovered/Not Resolved]
  - Hypoaesthesia [Not Recovered/Not Resolved]
  - Gait disturbance [Not Recovered/Not Resolved]
  - Electric shock sensation [Not Recovered/Not Resolved]
  - Balance disorder [Not Recovered/Not Resolved]
  - Pruritus [Not Recovered/Not Resolved]
  - Vision blurred [Not Recovered/Not Resolved]

NARRATIVE: CASE EVENT DATE: 20220101
